FAERS Safety Report 16094774 (Version 1)
Quarter: 2019Q1

REPORT INFORMATION
  Report Type: Spontaneous
  Country: US (occurrence: US)
  Receive Date: 20190320
  Receipt Date: 20190320
  Transmission Date: 20190418
  Serious: Yes (Other)
  Sender: FDA-Public Use
  Company Number: US-CELGENEUS-USA-20190304263

PATIENT
  Sex: Female

DRUGS (3)
  1. IDHIFA [Suspect]
     Active Substance: ENASIDENIB MESYLATE
     Indication: ACUTE MYELOID LEUKAEMIA
     Dosage: 100 MILLIGRAM
     Route: 048
  2. IDHIFA [Suspect]
     Active Substance: ENASIDENIB MESYLATE
     Indication: MYELODYSPLASTIC SYNDROME
  3. IDHIFA [Suspect]
     Active Substance: ENASIDENIB MESYLATE
     Indication: GLIOMA

REACTIONS (2)
  - Full blood count decreased [Recovered/Resolved]
  - Oropharyngeal pain [Recovered/Resolved]
